FAERS Safety Report 9521505 (Version 1)
Quarter: 2013Q1

REPORT INFORMATION
  Report Type: Spontaneous
  Country: US (occurrence: None)
  Receive Date: 20130305
  Receipt Date: 20130305
  Transmission Date: 20140127
  Serious: Yes (Other)
  Sender: FDA-Public Use
  Company Number: 163-21880-12072281

PATIENT
  Age: 59 Year
  Sex: Male
  Weight: 78.02 kg

DRUGS (7)
  1. REVLIMID (LENALIDOMIDE) (CAPSULES) [Suspect]
     Indication: PLASMA CELL MYELOMA
     Dosage: 10 MG, 1 IN 1 D, PO
     Route: 048
     Dates: start: 20120625
  2. ASA LOW DOSE (ACETYLSALICYLIC ACID) (UNKNOWN) [Concomitant]
  3. MULTIVITAMIN (MULTIVITAMINS) (UNKNOWN) [Concomitant]
  4. VIDAZA (AZACITIDINE) (UNKNOWN) [Concomitant]
  5. PROCHLORPER (PROCHLORPERAZINE) (UNKNOWN) [Concomitant]
  6. HYDROCO/APAP (VICODIN) (UNKNOWN) [Concomitant]
  7. DILAUDID (HYDROMORPHONE HYDROCHLORIDE) (UNKNOWN) [Concomitant]

REACTIONS (1)
  - Platelet count decreased [None]
